FAERS Safety Report 7489229-6 (Version None)
Quarter: 2011Q2

REPORT INFORMATION
  Report Type: 
  Country: None (occurrence: None)
  Receive Date: 20110518
  Receipt Date: 20110511
  Transmission Date: 20111010
  Serious: Yes (Death, Hospitalization)
  Sender: FDA-Public Use
  Company Number: US-NAPPMUNDI-GBR-2011-0008217

PATIENT
  Age: 31 Year
  Sex: Female
  Weight: 72.562 kg

DRUGS (1)
  1. MORPHINE SULFATE [Suspect]
     Indication: PRODUCT USED FOR UNKNOWN INDICATION

REACTIONS (6)
  - DRUG LEVEL [None]
  - VOMITING [None]
  - PYREXIA [None]
  - DIZZINESS [None]
  - PAIN IN EXTREMITY [None]
  - DYSPNOEA [None]
